FAERS Safety Report 9139271 (Version 1)
Quarter: 2013Q1

REPORT INFORMATION
  Report Type: Spontaneous
  Country: US (occurrence: None)
  Receive Date: 20130204
  Receipt Date: 20130204
  Transmission Date: 20140127
  Serious: Yes (Death)
  Sender: FDA-Public Use
  Company Number: 2011001709

PATIENT
  Age: 82 Year
  Sex: Male

DRUGS (1)
  1. TARCEVA (ERLOTINIB HYDROCHLORIDE) TABLET [Suspect]
     Indication: LUNG CARCINOMA CELL TYPE UNSPECIFIED STAGE 0
     Route: 048
     Dates: start: 20110330, end: 20121226

REACTIONS (3)
  - Incorrect dose administered [None]
  - Diarrhoea [None]
  - Rash [None]
